FAERS Safety Report 17346533 (Version 1)
Quarter: 2020Q1

REPORT INFORMATION
  Report Type: Spontaneous
  Country: US (occurrence: US)
  Receive Date: 20200114
  Receipt Date: 20200114
  Transmission Date: 20200409
  Serious: Yes (Hospitalization)
  Sender: FDA-Public Use
  Company Number: None

PATIENT
  Age: 90 Year
  Sex: Male

DRUGS (1)
  1. DOXYCYCLINE (DOXYCYCLINE HYCLATE 100MG CAP) [Suspect]
     Active Substance: DOXYCYCLINE HYCLATE
     Indication: PYODERMA GANGRENOSUM
     Route: 048
     Dates: start: 20191231, end: 20200105

REACTIONS (10)
  - Dehydration [None]
  - Dysphagia [None]
  - Chest discomfort [None]
  - Impaired self-care [None]
  - Oesophagitis [None]
  - Hypophagia [None]
  - Intentional product use issue [None]
  - Foreign body in respiratory tract [None]
  - Drug hypersensitivity [None]
  - Oncologic complication [None]

NARRATIVE: CASE EVENT DATE: 20200105
